FAERS Safety Report 4877399-5 (Version None)
Quarter: 2006Q1

REPORT INFORMATION
  Report Type: 
  Country: None (occurrence: None)
  Receive Date: 20060109
  Receipt Date: 20060109
  Transmission Date: 20060701
  Serious: Yes (Life-Threatening, Hospitalization, Disabling, Other)
  Sender: FDA-Public Use
  Company Number: None

PATIENT
  Age: 48 Year
  Sex: Female
  Weight: 81.6475 kg

DRUGS (3)
  1. CORICIDIN [Suspect]
     Indication: NASOPHARYNGITIS
     Dosage: ORAL
     Route: 048
  2. TAVIST-D [Suspect]
     Dosage: ORAL
     Route: 048
  3. CONTAC [Suspect]
     Dosage: ORAL
     Route: 048

REACTIONS (17)
  - AMNESIA [None]
  - ANGER [None]
  - ANXIETY [None]
  - APHASIA [None]
  - BALANCE DISORDER [None]
  - CONVULSION [None]
  - DEPRESSION [None]
  - DISTURBANCE IN ATTENTION [None]
  - HAEMORRHAGIC STROKE [None]
  - HEADACHE [None]
  - HEMIPARESIS [None]
  - INTRACRANIAL HAEMATOMA [None]
  - MIDDLE INSOMNIA [None]
  - RUPTURED CEREBRAL ANEURYSM [None]
  - SUBARACHNOID HAEMORRHAGE [None]
  - THINKING ABNORMAL [None]
  - WEIGHT DECREASED [None]
